FAERS Safety Report 14476940 (Version 1)
Quarter: 2018Q1

REPORT INFORMATION
  Report Type: Report from Study
  Country: US (occurrence: US)
  Receive Date: 20180201
  Receipt Date: 20180201
  Transmission Date: 20180509
  Serious: No
  Sender: FDA-Public Use
  Company Number: US-EXELIXIS-CABO-17009746

PATIENT
  Sex: Female

DRUGS (8)
  1. FLAXSEED [Concomitant]
     Active Substance: FLAX SEED
  2. MULTIVITAMIN [Concomitant]
     Active Substance: VITAMINS
  3. NICOTINE. [Concomitant]
     Active Substance: NICOTINE
  4. CABOMETYX [Suspect]
     Active Substance: CABOZANTINIB S-MALATE
     Indication: RENAL CANCER
     Dosage: 60 MG, QD
     Route: 048
     Dates: start: 20170613, end: 20170704
  5. IRON [Concomitant]
     Active Substance: IRON
  6. GLUCOSAMINE [Concomitant]
     Active Substance: GLUCOSAMINE
  7. AMLODIPINE [Concomitant]
     Active Substance: AMLODIPINE BESYLATE
  8. KRILL OIL [Concomitant]
     Active Substance: DIETARY SUPPLEMENT

REACTIONS (5)
  - Burning sensation [Unknown]
  - Erythema [Unknown]
  - Renal neoplasm [Unknown]
  - Blister [Unknown]
  - Limb discomfort [Unknown]
